FAERS Safety Report 8048102-5 (Version None)
Quarter: 2012Q1

REPORT INFORMATION
  Report Type: 
  Country: None (occurrence: None)
  Receive Date: 20120112
  Receipt Date: 20120112
  Transmission Date: 20120608
  Serious: Yes (Hospitalization, Disabling, Other)
  Sender: FDA-Public Use
  Company Number: None

PATIENT
  Sex: Male
  Weight: 99.7913 kg

DRUGS (4)
  1. CLOZAPINE [Suspect]
     Indication: SCHIZOPHRENIA
     Dosage: 300 MG TWICE DAILY 047
     Dates: start: 20100601, end: 20110815
  2. PHENELZINE SULFATE [Suspect]
     Indication: ANXIETY
     Dosage: 30 MG TWICE DAILY 047
     Dates: start: 20110601, end: 20110815
  3. PHENELZINE SULFATE [Suspect]
     Indication: DEPRESSION
     Dosage: 30 MG TWICE DAILY 047
     Dates: start: 20110601, end: 20110815
  4. LIPITOR [Concomitant]

REACTIONS (7)
  - ANXIETY [None]
  - PANIC ATTACK [None]
  - PRODUCT SUBSTITUTION ISSUE [None]
  - INSOMNIA [None]
  - PSYCHOTIC BEHAVIOUR [None]
  - PAIN [None]
  - DRUG INEFFECTIVE [None]
